FAERS Safety Report 25745453 (Version 1)
Quarter: 2025Q3

REPORT INFORMATION
  Report Type: Spontaneous
  Country: GB (occurrence: GB)
  Receive Date: 20250901
  Receipt Date: 20250901
  Transmission Date: 20251021
  Serious: Yes (Other)
  Sender: MDD OPERATIONS
  Company Number: GB-SUP-SUP202508-003254

PATIENT
  Age: 7 Year
  Sex: Female

DRUGS (6)
  1. TOPIRAMATE [Suspect]
     Active Substance: TOPIRAMATE
     Indication: Temporal lobe epilepsy
  2. TOPIRAMATE [Suspect]
     Active Substance: TOPIRAMATE
     Indication: Hippocampal sclerosis
  3. ESLICARBAZEPINE [Suspect]
     Active Substance: ESLICARBAZEPINE
     Indication: Temporal lobe epilepsy
  4. ESLICARBAZEPINE [Suspect]
     Active Substance: ESLICARBAZEPINE
     Indication: Hippocampal sclerosis
  5. PHENOBARBITAL [Suspect]
     Active Substance: PHENOBARBITAL
     Indication: Temporal lobe epilepsy
  6. PHENOBARBITAL [Suspect]
     Active Substance: PHENOBARBITAL
     Indication: Hippocampal sclerosis

REACTIONS (1)
  - Hyponatraemia [Unknown]
